FAERS Safety Report 17867581 (Version 2)
Quarter: 2020Q2

REPORT INFORMATION
  Report Type: Spontaneous
  Country: US (occurrence: US)
  Receive Date: 20200605
  Receipt Date: 20200605
  Transmission Date: 20200714
  Serious: Yes (Other)
  Sender: FDA-Public Use
  Company Number: US-SHIRE-US202017754

PATIENT
  Age: 17 Year
  Sex: Male
  Weight: 54 kg

DRUGS (4)
  1. GAMMAGARD S/D [Suspect]
     Active Substance: HUMAN IMMUNOGLOBULIN G
     Indication: OPTIC NEURITIS
     Dosage: 22 GRAM, UNKNOWN
     Route: 051
  2. PROPOFOL. [Concomitant]
     Active Substance: PROPOFOL
  3. CEFTRIAXONE. [Concomitant]
     Active Substance: CEFTRIAXONE
     Indication: PRODUCT USED FOR UNKNOWN INDICATION
     Route: 065
  4. GAMMAGARD S/D [Suspect]
     Active Substance: HUMAN IMMUNOGLOBULIN G
     Dosage: 22 GRAM, UNKNOWN
     Route: 051

REACTIONS (10)
  - Tachypnoea [Unknown]
  - Multiple organ dysfunction syndrome [Unknown]
  - Respiratory failure [Unknown]
  - Feeling abnormal [Unknown]
  - Intentional product use issue [Unknown]
  - Nystagmus [Unknown]
  - Paraesthesia [Unknown]
  - Septic shock [Unknown]
  - Tachycardia [Unknown]
  - Gaze palsy [Unknown]

NARRATIVE: CASE EVENT DATE: 20200517
